FAERS Safety Report 12812457 (Version 1)
Quarter: 2016Q4

REPORT INFORMATION
  Report Type: Spontaneous
  Country: US (occurrence: US)
  Receive Date: 20161005
  Receipt Date: 20161005
  Transmission Date: 20170207
  Serious: No
  Sender: FDA-Public Use
  Company Number: US-BAYER-2016-191865

PATIENT
  Age: 49 Year
  Sex: Male

DRUGS (3)
  1. VARDENAFIL HYDROCHLORIDE [Suspect]
     Active Substance: VARDENAFIL HYDROCHLORIDE TRIHYDRATE
     Indication: VASCULITIS
     Dosage: 20 MG, BIW
  2. ASPIRIN. [Concomitant]
     Active Substance: ASPIRIN
     Indication: VASCULITIS
     Dosage: 81 MG, QD
  3. PREDNISONE. [Concomitant]
     Active Substance: PREDNISONE
     Indication: VASCULITIS
     Dosage: 40 MG, QD
     Route: 048

REACTIONS (1)
  - Off label use [None]
